FAERS Safety Report 9098430 (Version 1)
Quarter: 2013Q1

REPORT INFORMATION
  Report Type: Spontaneous
  Country: US (occurrence: US)
  Receive Date: 20130213
  Receipt Date: 20130213
  Transmission Date: 20140127
  Serious: Yes (Other)
  Sender: FDA-Public Use
  Company Number: US-ASTRAZENECA-2013SE08438

PATIENT
  Age: 58 Year
  Sex: Female
  Weight: 99.8 kg

DRUGS (7)
  1. PRILOSEC [Suspect]
     Indication: PROPHYLAXIS AGAINST GASTROINTESTINAL ULCER
     Route: 048
     Dates: start: 2011
  2. UNKNOWN THYROID MEDICATION [Concomitant]
     Indication: HYPOTHYROIDISM
     Dates: start: 1983
  3. FLEXEROL [Concomitant]
     Indication: PAIN
  4. LORAZEPAM [Concomitant]
     Indication: BLADDER PAIN
  5. PROGESTERON/ ESTROGEN [Concomitant]
     Indication: HOT FLUSH
  6. NUMEROUS VITAMINS [Concomitant]
  7. METFORMIN [Concomitant]
     Indication: BLOOD GLUCOSE ABNORMAL

REACTIONS (8)
  - Blood glucose decreased [Unknown]
  - Back pain [Unknown]
  - Hot flush [Unknown]
  - Bone pain [Unknown]
  - Spinal pain [Unknown]
  - Weight decreased [Unknown]
  - Constipation [Unknown]
  - Off label use [Unknown]
